FAERS Safety Report 8319244-1 (Version None)
Quarter: 2012Q2

REPORT INFORMATION
  Report Type: 
  Country: None (occurrence: None)
  Receive Date: 20120427
  Receipt Date: 20120423
  Transmission Date: 20120825
  Serious: Yes (Other)
  Sender: FDA-Public Use
  Company Number: AU-ABBOTT-12P-008-0921801-00

PATIENT
  Sex: Female
  Weight: 96 kg

DRUGS (1)
  1. HUMIRA [Suspect]
     Indication: PSORIASIS
     Dates: start: 20120301

REACTIONS (4)
  - KNEE OPERATION [None]
  - MOBILITY DECREASED [None]
  - WEIGHT INCREASED [None]
  - MENISCUS LESION [None]
